FAERS Safety Report 6496815-9 (Version None)
Quarter: 2009Q4

REPORT INFORMATION
  Report Type: 
  Country: None (occurrence: None)
  Receive Date: 20091125
  Receipt Date: 20090407
  Transmission Date: 20100525
  Serious: Yes (Other)
  Sender: FDA-Public Use
  Company Number: 2009BH005738

PATIENT
  Age: 53 Year
  Sex: Male

DRUGS (3)
  1. DIANEAL PD4, AMBU-FLEX CONTAINER [Suspect]
     Indication: RENAL FAILURE CHRONIC
     Dosage: 2.5 L; EVERY DAY; IP
     Route: 033
     Dates: start: 20060911
  2. DIANEAL [Suspect]
     Indication: RENAL FAILURE CHRONIC
     Dosage: IP
     Route: 033
  3. EXTRANEAL [Concomitant]
     Indication: RENAL FAILURE CHRONIC
     Dosage: 1 L; EVERY DAY; IP
     Route: 033
     Dates: start: 20060911

REACTIONS (1)
  - PERITONITIS [None]
